FAERS Safety Report 17083498 (Version 2)
Quarter: 2019Q4

REPORT INFORMATION
  Report Type: Spontaneous
  Country: HR (occurrence: HR)
  Receive Date: 20191127
  Receipt Date: 20191206
  Transmission Date: 20200122
  Serious: Yes (Other)
  Sender: FDA-Public Use
  Company Number: HR-US-PROVELL PHARMACEUTICALS LLC-9130662

PATIENT
  Age: 66 Year
  Sex: Female

DRUGS (4)
  1. EUTHYROX NF [Suspect]
     Active Substance: LEVOTHYROXINE SODIUM
     Indication: HYPOTHYROIDISM
     Dosage: THERAPY START OF NEW FORMULATION WAS 15 NOV 2019
     Route: 048
     Dates: end: 20191116
  2. EUTHYROX [Suspect]
     Active Substance: LEVOTHYROXINE SODIUM
     Dosage: CONTINUED NORMALLY
     Dates: start: 201911, end: 201911
  3. EUTHYROX [Suspect]
     Active Substance: LEVOTHYROXINE SODIUM
     Dosage: HALF OF 75 MICROGRAM SINCE 16 NOV 2019
     Dates: start: 20191116
  4. EUTHYROX [Suspect]
     Active Substance: LEVOTHYROXINE SODIUM
     Indication: HYPOTHYROIDISM
     Dosage: OLD FORMULATION, 50 MICROGRAM IN WEEKDAYS (5DAYS) AND 75 MICROGRAM IN WEEKEND (2 DAYS)
     Dates: start: 2004, end: 2019

REACTIONS (2)
  - Swelling [Recovered/Resolved]
  - Salivary gland operation [Unknown]

NARRATIVE: CASE EVENT DATE: 20191104
